FAERS Safety Report 14297041 (Version 2)
Quarter: 2018Q3

REPORT INFORMATION
  Report Type: Spontaneous
  Country: TR (occurrence: TR)
  Receive Date: 20171218
  Receipt Date: 20180808
  Transmission Date: 20181010
  Serious: Yes (Other)
  Sender: FDA-Public Use
  Company Number: TR-PFIZER INC-2017535400

PATIENT
  Age: 17 Day
  Sex: Female
  Weight: 3.1 kg

DRUGS (11)
  1. SIROLIMUS. [Suspect]
     Active Substance: SIROLIMUS
     Dosage: 0.4 MG/M2, DAILY (DECREASED) (DAY0)
  2. OCTREOTIDE. [Concomitant]
     Active Substance: OCTREOTIDE
     Dosage: 40 UG/KG, DAILY
     Route: 058
  3. OCTREOTIDE. [Concomitant]
     Active Substance: OCTREOTIDE
     Dosage: 45 UG/KG, DAILY (15 MG/MONTHLY,OCTREOTIDE?LAR)
  4. OCTREOTIDE. [Concomitant]
     Active Substance: OCTREOTIDE
     Indication: HYPERINSULINISM
     Dosage: 23 UG/KG, DAILY
     Route: 058
  5. SIROLIMUS. [Suspect]
     Active Substance: SIROLIMUS
     Indication: PANCREATIC DISORDER
     Dosage: 0.5 MG/M2, DAILY
  6. OCTREOTIDE. [Concomitant]
     Active Substance: OCTREOTIDE
     Dosage: 10 UG/KG, DAILY (INCREASED FROM 10 TO 45 MCG/KG/D)
     Route: 058
  7. OCTREOTIDE. [Concomitant]
     Active Substance: OCTREOTIDE
     Dosage: 45 UG/KG, DAILY (INCREASED FROM 10 TO 45 MCG/KG/D)
     Route: 058
  8. LEVOTHYROXINE. [Concomitant]
     Active Substance: LEVOTHYROXINE
     Indication: CONGENITAL HYPERTHYROIDISM
     Dosage: 8 UG/KG, DAILY
  9. SIROLIMUS. [Suspect]
     Active Substance: SIROLIMUS
     Indication: HYPERINSULINISM
     Dosage: UNK
  10. SIROLIMUS. [Suspect]
     Active Substance: SIROLIMUS
     Dosage: 0.3 MG/M2, DAILY (INCREASED) (DAY 32)
  11. SIROLIMUS. [Suspect]
     Active Substance: SIROLIMUS
     Dosage: 0.2 MG/M2, DAILY (DAY10)

REACTIONS (3)
  - Product use in unapproved indication [Unknown]
  - Drug-induced liver injury [Recovering/Resolving]
  - Drug administered to patient of inappropriate age [Unknown]
